FAERS Safety Report 17767286 (Version 2)
Quarter: 2020Q2

REPORT INFORMATION
  Report Type: Report from Study
  Country: RO (occurrence: RO)
  Receive Date: 20200511
  Receipt Date: 20200518
  Transmission Date: 20200714
  Serious: Yes (Other)
  Sender: FDA-Public Use
  Company Number: RO-AMGEN-ROUCT2020073862

PATIENT
  Age: 66 Year
  Sex: Female

DRUGS (27)
  1. DARBEPOETIN ALFA [Suspect]
     Active Substance: DARBEPOETIN ALFA
     Dosage: 20 MICROGRAM, Q4WK
     Route: 058
     Dates: start: 20200113, end: 20200313
  2. THIOSSEN [Concomitant]
     Active Substance: .ALPHA.-LIPOIC ACID
     Dosage: UNK
     Dates: start: 20181024
  3. ARGININE [Concomitant]
     Active Substance: ARGININE
     Dosage: UNK
     Dates: start: 20190611
  4. ZALDIAR [Concomitant]
     Active Substance: ACETAMINOPHEN\TRAMADOL HYDROCHLORIDE
     Dosage: UNK
     Dates: start: 20161110
  5. BETASERC [Concomitant]
     Active Substance: BETAHISTINE
     Dosage: UNK
     Dates: start: 20170830
  6. DARBEPOETIN ALFA [Suspect]
     Active Substance: DARBEPOETIN ALFA
     Dosage: 20 MICROGRAM, Q4WK
     Route: 058
     Dates: start: 20171219, end: 20181122
  7. FOSAVANCE [Concomitant]
     Active Substance: ALENDRONATE SODIUM\CHOLECALCIFEROL
     Dosage: UNK
     Dates: start: 20200113
  8. DARBEPOETIN ALFA [Suspect]
     Active Substance: DARBEPOETIN ALFA
     Indication: ANAEMIA
     Dosage: 20 MICROGRAM, Q2WK
     Route: 058
     Dates: start: 20161219, end: 20170313
  9. DARBEPOETIN ALFA [Suspect]
     Active Substance: DARBEPOETIN ALFA
     Dosage: 10 MICROGRAM, Q4WK
     Route: 058
     Dates: start: 20181123, end: 20200112
  10. LORISTA [Concomitant]
     Active Substance: LOSARTAN POTASSIUM
     Dosage: UNK
     Dates: start: 20180824
  11. SILIMARINA [Concomitant]
     Dosage: UNK
     Dates: start: 20191221
  12. ASPENTER [Concomitant]
     Active Substance: ASPIRIN
     Dosage: UNK
     Dates: start: 201601
  13. PHYSIOTENS [Concomitant]
     Active Substance: MOXONIDINE
     Dosage: UNK
     Dates: start: 20170215
  14. REFEN [DICLOFENAC] [Concomitant]
     Dosage: UNK
     Dates: start: 20181218
  15. DARBEPOETIN ALFA [Suspect]
     Active Substance: DARBEPOETIN ALFA
     Dosage: 10 MICROGRAM, Q4WK
     Route: 058
     Dates: start: 20171024, end: 20171218
  16. VIMOVO [Concomitant]
     Active Substance: ESOMEPRAZOLE MAGNESIUM\NAPROXEN
     Dosage: UNK
     Dates: start: 201601
  17. DARBEPOETIN ALFA [Suspect]
     Active Substance: DARBEPOETIN ALFA
     Dosage: 20 MICROGRAM, Q4WK
     Route: 058
     Dates: start: 20170314, end: 20171023
  18. TRIPLIXAM [Concomitant]
     Active Substance: AMLODIPINE BESYLATE\INDAPAMIDE\PERINDOPRIL ARGININE
     Dosage: 5MG+2.5MG+5MG
     Dates: start: 20161110
  19. BILOBIL [Concomitant]
     Active Substance: GINKGO
     Dosage: UNK
     Dates: start: 201501
  20. FLEXIMOBIL [CHONDROITIN SULFATE SODIUM;GLUCOSAMINE SULFATE POTASSIUM C [Concomitant]
     Dosage: UNK
     Dates: start: 20161110
  21. DEXAMETHASONE. [Concomitant]
     Active Substance: DEXAMETHASONE
     Dosage: UNK
     Dates: start: 20181210
  22. NETILDEX [Concomitant]
     Active Substance: DEXAMETHASONE
     Dosage: UNK
     Dates: start: 20190404
  23. YELLOX [Concomitant]
     Active Substance: BROMFENAC SODIUM
     Dosage: UNK
     Dates: start: 20190404
  24. NIFEDIPIN [Concomitant]
     Active Substance: NIFEDIPINE
     Dosage: UNK
     Dates: start: 20190510
  25. COLCHICINE. [Concomitant]
     Active Substance: COLCHICINE
     Dosage: UNK
     Dates: start: 20170103
  26. OMEZ [OMEPRAZOLE] [Concomitant]
     Active Substance: OMEPRAZOLE
     Dosage: UNK
     Dates: start: 201501
  27. CEREBROLYSIN [Concomitant]
     Active Substance: CEREBROLYSIN
     Dosage: UNK
     Dates: start: 20181024

REACTIONS (1)
  - Hepatocellular injury [Recovering/Resolving]

NARRATIVE: CASE EVENT DATE: 20200313
